FAERS Safety Report 5367673-0 (Version None)
Quarter: 2007Q2

REPORT INFORMATION
  Report Type: 
  Country: None (occurrence: None)
  Receive Date: 20070622
  Receipt Date: 20070129
  Transmission Date: 20071010
  Serious: Yes (Other)
  Sender: FDA-Public Use
  Company Number: US-ASTRAZENECA-2007UW01731

PATIENT
  Age: 59 Year
  Sex: Female
  Weight: 88.5 kg

DRUGS (6)
  1. PULMICORT [Suspect]
     Indication: ASTHMA
     Route: 055
     Dates: start: 20060101, end: 20060501
  2. PULMICORT [Suspect]
     Route: 055
     Dates: start: 20060501, end: 20061101
  3. PULMICORT [Suspect]
     Route: 055
     Dates: start: 20070125
  4. SINGULAIR [Concomitant]
     Dates: start: 20070125
  5. NASONEX [Concomitant]
     Dates: start: 20070125
  6. CLARITIN [Concomitant]
     Dates: start: 20070125

REACTIONS (3)
  - ASTHMA [None]
  - RASH MACULO-PAPULAR [None]
  - URTICARIA [None]
